FAERS Safety Report 13237949 (Version 1)
Quarter: 2017Q1

REPORT INFORMATION
  Report Type: Spontaneous
  Country: US (occurrence: US)
  Receive Date: 20170215
  Receipt Date: 20170215
  Transmission Date: 20170428
  Serious: Yes (Disabling)
  Sender: FDA-Public Use
  Company Number: None

PATIENT
  Age: 72 Year
  Sex: Male
  Weight: 72 kg

DRUGS (12)
  1. MAGNESIUM [Concomitant]
     Active Substance: MAGNESIUM
  2. CALCIUM [Concomitant]
     Active Substance: CALCIUM
  3. SYNTHROID [Concomitant]
     Active Substance: LEVOTHYROXINE SODIUM
  4. POTASSIUM [Concomitant]
     Active Substance: POTASSIUM
  5. ATORVASTATIN [Concomitant]
     Active Substance: ATORVASTATIN
  6. ZETIA [Concomitant]
     Active Substance: EZETIMIBE
  7. VIT. D [Concomitant]
  8. QVAR [Suspect]
     Active Substance: BECLOMETHASONE DIPROPIONATE
     Indication: ASTHMA
     Dosage: 120 PUFF(S) TWICE A DAY RESPIRATORY (INHALATION)?
     Route: 055
     Dates: start: 20170126, end: 20170209
  9. ASPIRIN. [Concomitant]
     Active Substance: ASPIRIN
  10. VITAMIN B COMPLEX [Concomitant]
     Active Substance: CYANOCOBALAMIN\DEXPANTHENOL\NIACINAMIDE\PYRIDOXINE HYDROCHLORIDE\RIBOFLAVIN 5^-PHOSPHATE SODIUM\THIAMINE HYDROCHLORIDE\VITAMIN B COMPLEX
  11. ATENOLOL. [Concomitant]
     Active Substance: ATENOLOL
  12. ALBUTEROL. [Concomitant]
     Active Substance: ALBUTEROL

REACTIONS (2)
  - Device malfunction [None]
  - Asthma [None]

NARRATIVE: CASE EVENT DATE: 20170208
